FAERS Safety Report 15656312 (Version 3)
Quarter: 2018Q4

REPORT INFORMATION
  Report Type: Report from Study
  Country: CA (occurrence: CA)
  Receive Date: 20181126
  Receipt Date: 20181220
  Transmission Date: 20190205
  Serious: Yes (Hospitalization, Other)
  Sender: FDA-Public Use
  Company Number: CA-JNJFOC-20181025309

PATIENT
  Age: 44 Year
  Sex: Female
  Weight: 90 kg

DRUGS (3)
  1. STELARA [Suspect]
     Active Substance: USTEKINUMAB
     Indication: CROHN^S DISEASE
     Route: 058
  2. STELARA [Suspect]
     Active Substance: USTEKINUMAB
     Indication: CROHN^S DISEASE
     Route: 058
  3. STELARA [Suspect]
     Active Substance: USTEKINUMAB
     Indication: CROHN^S DISEASE
     Dosage: STRENGTH = 130 MG
     Route: 058
     Dates: start: 20180920

REACTIONS (9)
  - Fatigue [Recovered/Resolved]
  - Crohn^s disease [Not Recovered/Not Resolved]
  - Anal fissure [Unknown]
  - Off label use [Unknown]
  - Hepatic enzyme increased [Unknown]
  - Scab [Unknown]
  - Headache [Unknown]
  - Nausea [Unknown]
  - Product use issue [Unknown]

NARRATIVE: CASE EVENT DATE: 2018
